FAERS Safety Report 13230662 (Version 1)
Quarter: 2017Q1

REPORT INFORMATION
  Report Type: Spontaneous
  Country: US (occurrence: US)
  Receive Date: 20170214
  Receipt Date: 20170214
  Transmission Date: 20170428
  Serious: Yes (Death)
  Sender: FDA-Public Use
  Company Number: None

PATIENT
  Age: 53 Year
  Sex: Male
  Weight: 158.4 kg

DRUGS (31)
  1. PHENYLEPHRINE [Concomitant]
     Active Substance: PHENYLEPHRINE\PHENYLEPHRINE HYDROCHLORIDE
  2. IOHEXOL [Concomitant]
     Active Substance: IOHEXOL
  3. PANTOPRAZOLE [Concomitant]
     Active Substance: PANTOPRAZOLE SODIUM
  4. SODIUM BICARBONATE. [Concomitant]
     Active Substance: SODIUM BICARBONATE
  5. FENTANYL. [Concomitant]
     Active Substance: FENTANYL
  6. CITALOPRAM [Concomitant]
     Active Substance: CITALOPRAM HYDROBROMIDE
  7. ALLOPURINOL. [Concomitant]
     Active Substance: ALLOPURINOL
  8. ADENOSINE. [Concomitant]
     Active Substance: ADENOSINE
  9. ONDANSETRON [Concomitant]
     Active Substance: ONDANSETRON
  10. AMIODARONE [Concomitant]
     Active Substance: AMIODARONE
  11. PROPOFOL. [Concomitant]
     Active Substance: PROPOFOL
  12. MORPHINE SULFATE. [Concomitant]
     Active Substance: MORPHINE SULFATE
  13. MELOXICAM. [Concomitant]
     Active Substance: MELOXICAM
  14. GABAPENTIN. [Concomitant]
     Active Substance: GABAPENTIN
  15. LISINOPRIL. [Concomitant]
     Active Substance: LISINOPRIL
  16. ETOMIDATE. [Concomitant]
     Active Substance: ETOMIDATE
  17. HYDROMORPHONE [Concomitant]
     Active Substance: HYDROMORPHONE
  18. VASOPRESSIN. [Concomitant]
     Active Substance: VASOPRESSIN
  19. SODIUM CHLORIDE. [Concomitant]
     Active Substance: SODIUM CHLORIDE
  20. VIBERZI [Suspect]
     Active Substance: ELUXADOLINE
     Indication: IRRITABLE BOWEL SYNDROME
     Dosage: ?          OTHER FREQUENCY:ONE TIME;?
     Route: 048
  21. NOREPINEPHRINE [Concomitant]
     Active Substance: NOREPINEPHRINE\NOREPINEPHRINE BITARTRATE
  22. SODIUM CHLORIDE. [Concomitant]
     Active Substance: SODIUM CHLORIDE
  23. LORATIDINE [Concomitant]
     Active Substance: LORATADINE
  24. CALCIUM CHLORIDE. [Concomitant]
     Active Substance: CALCIUM CHLORIDE
  25. MAGNESIUM SULFATE. [Concomitant]
     Active Substance: MAGNESIUM SULFATE
  26. SODIUM BICARBONATE. [Concomitant]
     Active Substance: SODIUM BICARBONATE
  27. ACETAMINOPHEN. [Concomitant]
     Active Substance: ACETAMINOPHEN
  28. MIDAZOLAM [Concomitant]
     Active Substance: MIDAZOLAM HYDROCHLORIDE
  29. CALCIUM GLUCONATE. [Concomitant]
     Active Substance: CALCIUM GLUCONATE
  30. LR INFUSION [Concomitant]
  31. PIPERACILLIN AND TAZOBACTAM [Concomitant]
     Active Substance: PIPERACILLIN SODIUM\TAZOBACTAM SODIUM

REACTIONS (27)
  - Vomiting [None]
  - Haemodynamic instability [None]
  - Oliguria [None]
  - Respiratory acidosis [None]
  - Abdominal distension [None]
  - Pancreatitis acute [None]
  - Oxygen saturation decreased [None]
  - Tachypnoea [None]
  - Multi-organ disorder [None]
  - Metabolic acidosis [None]
  - Abdominal pain [None]
  - Blood pressure increased [None]
  - Bradycardia [None]
  - Heart rate increased [None]
  - Abdominal tenderness [None]
  - Hypoglycaemia [None]
  - Pulmonary oedema [None]
  - Systemic inflammatory response syndrome [None]
  - Gastric dilatation [None]
  - Cardiac arrest [None]
  - Lethargy [None]
  - Gastric disorder [None]
  - Acute respiratory distress syndrome [None]
  - Pupil fixed [None]
  - Nausea [None]
  - Hypocalcaemia [None]
  - Respiratory failure [None]

NARRATIVE: CASE EVENT DATE: 20170118
